FAERS Safety Report 14505266 (Version 2)
Quarter: 2018Q1

REPORT INFORMATION
  Report Type: Report from Study
  Country: US (occurrence: US)
  Receive Date: 20180208
  Receipt Date: 20180223
  Transmission Date: 20180509
  Serious: Yes (Other)
  Sender: FDA-Public Use
  Company Number: US-BAYER-2018-001935

PATIENT
  Age: 58 Year
  Sex: Male

DRUGS (2)
  1. NEXAVAR [Suspect]
     Active Substance: SORAFENIB
     Indication: HEPATOCELLULAR CARCINOMA
     Dosage: 400 MG, BID
     Route: 048
     Dates: start: 20171231, end: 20180111
  2. NEXAVAR [Suspect]
     Active Substance: SORAFENIB
     Indication: HEPATOCELLULAR CARCINOMA
     Dosage: 400 MG, BID
     Route: 048

REACTIONS (14)
  - Varices oesophageal [None]
  - Dizziness [None]
  - Abdominal pain [None]
  - Asthenia [None]
  - Fatigue [None]
  - Vomiting [None]
  - Vomiting [Not Recovered/Not Resolved]
  - Nausea [None]
  - Decreased appetite [None]
  - Weight decreased [None]
  - Oropharyngeal pain [None]
  - Rash papular [None]
  - Renal impairment [None]
  - Arthralgia [None]
